FAERS Safety Report 21321637 (Version 1)
Quarter: 2022Q3

REPORT INFORMATION
  Report Type: Spontaneous
  Country: US (occurrence: None)
  Receive Date: 20220909
  Receipt Date: 20220909
  Transmission Date: 20221027
  Serious: Yes (Hospitalization)
  Sender: FDA-Public Use
  Company Number: None

PATIENT
  Age: 62 Year
  Sex: Male

DRUGS (1)
  1. ABIRATERONE [Suspect]
     Active Substance: ABIRATERONE
     Dosage: 750MG DAILY ORAL?
     Route: 048

REACTIONS (3)
  - Off label use [None]
  - Poor peripheral circulation [None]
  - Therapy interrupted [None]

NARRATIVE: CASE EVENT DATE: 20220901
